FAERS Safety Report 11305817 (Version 2)
Quarter: 2015Q3

REPORT INFORMATION
  Report Type: Spontaneous
  Country: JP (occurrence: JP)
  Receive Date: 20150723
  Receipt Date: 20150818
  Transmission Date: 20151125
  Serious: Yes (Death, Life-Threatening)
  Sender: FDA-Public Use
  Company Number: JP-PFIZER INC-2015244697

PATIENT
  Age: 87 Year
  Sex: Male
  Weight: 53 kg

DRUGS (6)
  1. VANCOMYCIN HYDROCHLORIDE. [Concomitant]
     Active Substance: VANCOMYCIN HYDROCHLORIDE
     Indication: PSEUDOMEMBRANOUS COLITIS
     Dosage: 0.5 G, DAILY
     Route: 048
     Dates: start: 20110302, end: 20110308
  2. VITAMEDIN [Concomitant]
     Active Substance: CYANOCOBALAMIN\PYRIDOXINE HYDROCHLORIDE\THIAMINE
     Indication: DYSPHAGIA
     Dosage: 1 DF, DAILY
     Route: 041
     Dates: start: 20110303, end: 20110307
  3. PHYSIOSOL 3 [Concomitant]
     Indication: PSEUDOMEMBRANOUS COLITIS
     Dosage: 1000 ML, DAILY
     Route: 041
     Dates: start: 20110303, end: 20110311
  4. SOLITA-T1 [Concomitant]
     Indication: DYSPHAGIA
     Dosage: 500 ML, DAILY
     Route: 041
     Dates: start: 20110303, end: 20110307
  5. ZOSYN [Suspect]
     Active Substance: PIPERACILLIN SODIUM\TAZOBACTAM SODIUM
     Indication: PNEUMONIA
     Dosage: 2.25 G, 3X/DAY
     Route: 041
     Dates: start: 20110303, end: 20110315
  6. SOLITA-T NO.4 [Concomitant]
     Indication: DYSPHAGIA
     Dosage: 500 ML, DAILY
     Route: 041
     Dates: start: 20110303, end: 20110321

REACTIONS (2)
  - Ventricular tachycardia [Fatal]
  - Acute kidney injury [Recovering/Resolving]

NARRATIVE: CASE EVENT DATE: 20110304
